FAERS Safety Report 26169700 (Version 1)
Quarter: 2025Q4

REPORT INFORMATION
  Report Type: Spontaneous
  Country: GB (occurrence: GB)
  Receive Date: 20251217
  Receipt Date: 20251217
  Transmission Date: 20260118
  Serious: Yes (Other)
  Sender: MYLAN
  Company Number: None

PATIENT
  Age: 54 Year
  Sex: Male
  Weight: 69 kg

DRUGS (12)
  1. CANDESARTAN [Suspect]
     Active Substance: CANDESARTAN
     Indication: Product used for unknown indication
     Dosage: 4 MILLIGRAM, QD (TAKE ONE ONCE DAILY FOR 2 WEEKS, THEN TAKE TWO ...)
     Dates: start: 20251022
  2. CANDESARTAN [Suspect]
     Active Substance: CANDESARTAN
     Dosage: 4 MILLIGRAM, QD (TAKE ONE ONCE DAILY FOR 2 WEEKS, THEN TAKE TWO ...)
     Route: 065
     Dates: start: 20251022
  3. CANDESARTAN [Suspect]
     Active Substance: CANDESARTAN
     Dosage: 4 MILLIGRAM, QD (TAKE ONE ONCE DAILY FOR 2 WEEKS, THEN TAKE TWO ...)
     Route: 065
     Dates: start: 20251022
  4. CANDESARTAN [Suspect]
     Active Substance: CANDESARTAN
     Dosage: 4 MILLIGRAM, QD (TAKE ONE ONCE DAILY FOR 2 WEEKS, THEN TAKE TWO ...)
     Dates: start: 20251022
  5. FLUCLOXACILLIN [Concomitant]
     Active Substance: FLUCLOXACILLIN
     Dosage: 1 DOSAGE FORM, QID (TAKE ONE 4 TIMES/DAY)
     Dates: start: 20250922, end: 20250929
  6. FLUCLOXACILLIN [Concomitant]
     Active Substance: FLUCLOXACILLIN
     Dosage: 1 DOSAGE FORM, QID (TAKE ONE 4 TIMES/DAY)
     Route: 065
     Dates: start: 20250922, end: 20250929
  7. FLUCLOXACILLIN [Concomitant]
     Active Substance: FLUCLOXACILLIN
     Dosage: 1 DOSAGE FORM, QID (TAKE ONE 4 TIMES/DAY)
     Route: 065
     Dates: start: 20250922, end: 20250929
  8. FLUCLOXACILLIN [Concomitant]
     Active Substance: FLUCLOXACILLIN
     Dosage: 1 DOSAGE FORM, QID (TAKE ONE 4 TIMES/DAY)
     Dates: start: 20250922, end: 20250929
  9. BECLOMETHASONE\FORMOTEROL [Concomitant]
     Active Substance: BECLOMETHASONE\FORMOTEROL
     Dosage: 1 DOSAGE FORM, PRN (TAKE ONE PUFF AS NEEDED UP TO 6X A DAY)
  10. BECLOMETHASONE\FORMOTEROL [Concomitant]
     Active Substance: BECLOMETHASONE\FORMOTEROL
     Dosage: 1 DOSAGE FORM, PRN (TAKE ONE PUFF AS NEEDED UP TO 6X A DAY)
     Route: 065
  11. BECLOMETHASONE\FORMOTEROL [Concomitant]
     Active Substance: BECLOMETHASONE\FORMOTEROL
     Dosage: 1 DOSAGE FORM, PRN (TAKE ONE PUFF AS NEEDED UP TO 6X A DAY)
     Route: 065
  12. BECLOMETHASONE\FORMOTEROL [Concomitant]
     Active Substance: BECLOMETHASONE\FORMOTEROL
     Dosage: 1 DOSAGE FORM, PRN (TAKE ONE PUFF AS NEEDED UP TO 6X A DAY)

REACTIONS (2)
  - Vomiting [Recovered/Resolved]
  - Nausea [Recovered/Resolved]
